FAERS Safety Report 13106054 (Version 1)
Quarter: 2017Q1

REPORT INFORMATION
  Report Type: Report from Study
  Country: FR (occurrence: FR)
  Receive Date: 20170111
  Receipt Date: 20170111
  Transmission Date: 20170428
  Serious: Yes (Other)
  Sender: FDA-Public Use
  Company Number: FR-TEVA-728011ISR

PATIENT
  Age: 72 Year
  Sex: Female

DRUGS (2)
  1. METFORMIN [Suspect]
     Active Substance: METFORMIN HYDROCHLORIDE
     Route: 065
  2. VILDAGLIPTIN [Suspect]
     Active Substance: VILDAGLIPTIN
     Route: 065

REACTIONS (1)
  - Pemphigoid [Recovering/Resolving]
